FAERS Safety Report 25527870 (Version 1)
Quarter: 2025Q3

REPORT INFORMATION
  Report Type: Report from Study
  Country: GB (occurrence: GB)
  Receive Date: 20250708
  Receipt Date: 20250708
  Transmission Date: 20251020
  Serious: Yes (Hospitalization, Other)
  Sender: CELLTRION
  Company Number: GB-CELLTRION INC.-2025GB021661

PATIENT

DRUGS (4)
  1. ADALIMUMAB-AATY [Suspect]
     Active Substance: ADALIMUMAB-AATY
     Indication: Rheumatoid arthritis
     Dosage: 40MG FOR INJECTION PENS (INJECT ONE PRE-FILLED PEN EVERY TWO WEEKS)
     Route: 058
     Dates: start: 202503
  2. ADALIMUMAB-AATY [Suspect]
     Active Substance: ADALIMUMAB-AATY
     Dosage: HAD A TOTAL OF 4 INJECTIONS / YUFLYMA 40MG FOR INJECTION PENS (INJECT ONE PRE-FILLED PEN EVERY TWO W
     Route: 058
  3. ADALIMUMAB-AATY [Suspect]
     Active Substance: ADALIMUMAB-AATY
     Dosage: HAD A TOTAL OF 4 INJECTIONS / YUFLYMA 40MG FOR INJECTION PENS (INJECT ONE PRE-FILLED PEN EVERY TWO W
     Route: 058
  4. ADALIMUMAB-AATY [Suspect]
     Active Substance: ADALIMUMAB-AATY
     Dosage: PT LAST HAD AN INJECTION ON 16/6 / 40MG FOR INJECTION PENS (INJECT ONE PRE-FILLED PEN EVERY TWO WEEK
     Route: 058

REACTIONS (3)
  - Pneumonia [Unknown]
  - Immunodeficiency [Unknown]
  - Pain [Unknown]
